FAERS Safety Report 4536779-8 (Version None)
Quarter: 2004Q4

REPORT INFORMATION
  Report Type: 
  Country: None (occurrence: None)
  Receive Date: 20041223
  Receipt Date: 20041217
  Transmission Date: 20050328
  Serious: Yes (Death)
  Sender: FDA-Public Use
  Company Number: US-ROCHE-389840

PATIENT
  Age: 56 Year
  Sex: Male

DRUGS (14)
  1. CELLCEPT [Suspect]
     Indication: LIVER TRANSPLANT
     Route: 048
     Dates: start: 20040915, end: 20041216
  2. CELLCEPT [Suspect]
     Route: 048
     Dates: start: 20040315, end: 20040515
  3. CELLCEPT [Suspect]
     Route: 048
     Dates: start: 20040515, end: 20040915
  4. PROGRAF [Suspect]
     Indication: DRUG USE FOR UNKNOWN INDICATION
     Route: 048
     Dates: start: 20040921
  5. RAPAMUNE [Concomitant]
     Indication: TRANSPLANT
     Route: 048
  6. ZOFRAN [Concomitant]
     Route: 048
  7. REGLAN [Concomitant]
     Route: 048
  8. POTASSIUM [Concomitant]
     Route: 048
  9. LASIX [Concomitant]
     Route: 048
  10. ALDACTONE [Concomitant]
     Route: 048
  11. CALCIUM CARBONATE [Concomitant]
     Route: 048
  12. ACTIGALL [Concomitant]
     Route: 048
  13. SEPTRA [Concomitant]
     Route: 048
  14. ZANTAC [Concomitant]
     Route: 048

REACTIONS (11)
  - ANOREXIA [None]
  - BLOOD PRESSURE INCREASED [None]
  - CONFUSIONAL STATE [None]
  - DIZZINESS [None]
  - HEPATIC ENZYME INCREASED [None]
  - INSOMNIA [None]
  - JAUNDICE [None]
  - MULTI-ORGAN FAILURE [None]
  - NAUSEA [None]
  - VOMITING [None]
  - WHITE BLOOD CELL COUNT INCREASED [None]
